FAERS Safety Report 8828904 (Version 1)
Quarter: 2012Q4

REPORT INFORMATION
  Report Type: 
  Country: US (occurrence: US)
  Receive Date: 20121008
  Receipt Date: 20121008
  Transmission Date: 20130627
  Serious: Yes (Other)
  Sender: FDA-Public Use
  Company Number: US-ROCHE-783618

PATIENT
  Sex: Male
  Weight: 63.56 kg

DRUGS (6)
  1. ACCUTANE [Suspect]
     Indication: ACNE
     Route: 065
     Dates: start: 200406, end: 200408
  2. ACCUTANE [Suspect]
     Route: 065
     Dates: start: 200412, end: 200503
  3. AMNESTEEM [Suspect]
     Indication: ACNE
     Route: 065
  4. SOTRET [Suspect]
     Indication: ACNE
     Route: 065
  5. RITALIN [Concomitant]
  6. ADVIL [Concomitant]

REACTIONS (4)
  - Inflammatory bowel disease [Unknown]
  - Crohn^s disease [Unknown]
  - Emotional distress [Unknown]
  - Suicidal ideation [Unknown]
